FAERS Safety Report 4448484-7 (Version None)
Quarter: 2004Q3

REPORT INFORMATION
  Report Type: 
  Country: None (occurrence: None)
  Receive Date: 20040909
  Receipt Date: 20040909
  Transmission Date: 20050211
  Serious: No
  Sender: FDA-Public Use
  Company Number: None

PATIENT
  Age: 22 Year
  Sex: Male

DRUGS (2)
  1. LIDOCAINE HYDROCHLORIDE 2% [Suspect]
     Indication: LACERATION
     Dosage: 1ML ONE TIME SUBCUTANEOUS
     Route: 058
     Dates: start: 20040828, end: 20040828
  2. LIDOCAINE HYDROCHLORIDE 2% [Suspect]
     Indication: SKIN DISORDER
     Dosage: 1ML ONE TIME SUBCUTANEOUS
     Route: 058
     Dates: start: 20040828, end: 20040828

REACTIONS (1)
  - ERYTHEMA [None]
